FAERS Safety Report 16210827 (Version 3)
Quarter: 2019Q2

REPORT INFORMATION
  Report Type: Spontaneous
  Country: JP (occurrence: JP)
  Receive Date: 20190418
  Receipt Date: 20190608
  Transmission Date: 20190711
  Serious: Yes (Hospitalization, Other)
  Sender: FDA-Public Use
  Company Number: JP-ABBVIE-19P-087-2750142-00

PATIENT
  Age: 82 Year
  Sex: Male
  Weight: 53.5 kg

DRUGS (3)
  1. CASODEX [Suspect]
     Active Substance: BICALUTAMIDE
     Indication: PROSTATE CANCER
     Dosage: 80 MILLIGRAM, QD
     Route: 048
     Dates: start: 20161111, end: 20170303
  2. LEUPLIN [Suspect]
     Active Substance: LEUPROLIDE ACETATE
     Indication: PROSTATE CANCER
     Dosage: 22.5 MILLIGRAM, Q6MONTHS
     Route: 058
     Dates: start: 20170303, end: 20170908
  3. URIEF [Suspect]
     Active Substance: SILODOSIN
     Indication: POLLAKIURIA
     Dosage: 4 MILLIGRAM, BID
     Route: 048
     Dates: start: 20160909, end: 20170303

REACTIONS (3)
  - Influenza [Recovered/Resolved]
  - Interstitial lung disease [Recovering/Resolving]
  - Malaise [Unknown]

NARRATIVE: CASE EVENT DATE: 20180307
